FAERS Safety Report 5660953-0 (Version None)
Quarter: 2008Q1

REPORT INFORMATION
  Report Type: 
  Country: None (occurrence: None)
  Receive Date: 20080311
  Receipt Date: 20080303
  Transmission Date: 20080703
  Serious: Yes (Death, Hospitalization)
  Sender: FDA-Public Use
  Company Number: NL-PURDUE-GBR_2008_0003587

PATIENT
  Age: 87 Year
  Sex: Female

DRUGS (5)
  1. PALLADONE [Suspect]
     Indication: BACK PAIN
     Dosage: 8 MG, TID
     Route: 065
     Dates: start: 20070613, end: 20070614
  2. PALLADONE [Suspect]
     Dosage: 8 MG, BID
     Route: 048
     Dates: start: 20070608, end: 20070612
  3. PALLADONE [Suspect]
     Dosage: 4 MG, BID
     Route: 048
     Dates: start: 20070604, end: 20070608
  4. PALLADONE [Concomitant]
     Indication: PAIN
     Dosage: 1-2X1.3 MG
     Route: 048
     Dates: start: 20070608
  5. OXYCONTIN [Concomitant]
     Indication: PAIN
     Dosage: 20 MG, BID
     Route: 048
     Dates: end: 20070604

REACTIONS (2)
  - PAIN [None]
  - RECTAL HAEMORRHAGE [None]
